FAERS Safety Report 7345500-X (Version None)
Quarter: 2011Q1

REPORT INFORMATION
  Report Type: 
  Country: None (occurrence: None)
  Receive Date: 20110310
  Receipt Date: 20110302
  Transmission Date: 20110831
  Serious: Yes (Other)
  Sender: FDA-Public Use
  Company Number: US-ASTRAZENECA-2011SE11382

PATIENT
  Age: 84 Year
  Sex: Male
  Weight: 68 kg

DRUGS (3)
  1. HUMALOG [Concomitant]
     Indication: DIABETES MELLITUS
     Dosage: 20U, THREE TIMES A DAY
  2. LANTUS [Concomitant]
     Indication: DIABETES MELLITUS
  3. CRESTOR [Suspect]
     Route: 048

REACTIONS (1)
  - LOSS OF CONSCIOUSNESS [None]
